FAERS Safety Report 20514240 (Version 3)
Quarter: 2022Q2

REPORT INFORMATION
  Report Type: Report from Study
  Country: CN (occurrence: CN)
  Receive Date: 20220224
  Receipt Date: 20220414
  Transmission Date: 20220721
  Serious: Yes (Life-Threatening)
  Sender: FDA-Public Use
  Company Number: CN-GLAXOSMITHKLINE-CN2022GSK032622

PATIENT
  Age: 69 Year
  Sex: Male

DRUGS (8)
  1. BELANTAMAB MAFODOTIN [Suspect]
     Active Substance: BELANTAMAB MAFODOTIN
     Indication: Plasma cell myeloma
     Dosage: 2.5 MG/KG, CYC (ON DAY 1 OF EVERY 21 DAY CYCLE)
     Route: 042
     Dates: start: 20211229, end: 20220222
  2. RHUBARB [Concomitant]
     Active Substance: RHUBARB
     Indication: Cholelithiasis
     Dosage: 0.6 G, PRN
     Route: 048
     Dates: start: 2015
  3. METFORMIN [Concomitant]
     Active Substance: METFORMIN HYDROCHLORIDE
     Indication: Diabetes mellitus
     Dosage: 0.5 G, TID
     Route: 048
     Dates: start: 2003
  4. INSULIN GLARGINE INJECTION [Concomitant]
     Indication: Diabetes mellitus
     Dosage: 10 IU, SINGLE
     Route: 058
     Dates: start: 2020
  5. GULONG CAPSULE [Concomitant]
     Indication: Bone pain
     Dosage: 1.2 G, BID
     Route: 048
     Dates: start: 2019
  6. GULONG CAPSULE [Concomitant]
     Indication: Intervertebral disc protrusion
  7. LOXOPROFEN SODIUM [Concomitant]
     Active Substance: LOXOPROFEN SODIUM
     Indication: Bone pain
     Dosage: 60 MG, BID
     Route: 048
     Dates: start: 2019
  8. LOXOPROFEN SODIUM [Concomitant]
     Active Substance: LOXOPROFEN SODIUM
     Indication: Intervertebral disc protrusion

REACTIONS (1)
  - Platelet count decreased [Recovered/Resolved]

NARRATIVE: CASE EVENT DATE: 20220221
